FAERS Safety Report 20656423 (Version 1)
Quarter: 2022Q1

REPORT INFORMATION
  Report Type: Spontaneous
  Country: GR (occurrence: GR)
  Receive Date: 20220331
  Receipt Date: 20220331
  Transmission Date: 20220423
  Serious: Yes (Hospitalization, Other)
  Sender: FDA-Public Use
  Company Number: GR-CELLTRION INC.-2022GR003494

PATIENT

DRUGS (9)
  1. INFLIXIMAB [Suspect]
     Active Substance: INFLIXIMAB
     Indication: Crohn^s disease
  2. AZATHIOPRINE [Suspect]
     Active Substance: AZATHIOPRINE
     Indication: Crohn^s disease
  3. USTEKINUMAB [Suspect]
     Active Substance: USTEKINUMAB
     Indication: Crohn^s disease
  4. METRONIDAZOLE [Concomitant]
     Active Substance: METRONIDAZOLE
     Indication: Liver abscess
  5. AVIBACTAM [Concomitant]
     Active Substance: AVIBACTAM
     Indication: Liver abscess
  6. CASPOFUNGIN [Concomitant]
     Active Substance: CASPOFUNGIN
     Indication: Liver abscess
  7. VANCOMYCIN [Concomitant]
     Active Substance: VANCOMYCIN
     Indication: Liver abscess
  8. MEROPENEM [Concomitant]
     Active Substance: MEROPENEM
     Indication: Liver abscess
  9. LINEZOLID [Concomitant]
     Active Substance: LINEZOLID
     Indication: Liver abscess

REACTIONS (4)
  - Hypertransaminasaemia [Recovering/Resolving]
  - Liver abscess [Recovering/Resolving]
  - Alpha haemolytic streptococcal infection [Recovering/Resolving]
  - Staphylococcal infection [Recovering/Resolving]
